FAERS Safety Report 7859467-9 (Version None)
Quarter: 2011Q4

REPORT INFORMATION
  Report Type: 
  Country: None (occurrence: None)
  Receive Date: 20111027
  Receipt Date: 20111020
  Transmission Date: 20120403
  Serious: Yes (Other)
  Sender: FDA-Public Use
  Company Number: DE-UCBSA-043944

PATIENT
  Age: 24 Month
  Sex: Female

DRUGS (2)
  1. PETNIDAN [Concomitant]
  2. KEPPRA [Suspect]
     Route: 048
     Dates: start: 20110301

REACTIONS (1)
  - GROWTH RETARDATION [None]
